FAERS Safety Report 9518818 (Version 2)
Quarter: 2013Q3

REPORT INFORMATION
  Report Type: Spontaneous
  Country: DE (occurrence: DE)
  Receive Date: 20130912
  Receipt Date: 20130912
  Transmission Date: 20140515
  Serious: Yes (Hospitalization)
  Sender: FDA-Public Use
  Company Number: DE-BAYER-2013-094370

PATIENT
  Age: 41 Year
  Sex: Female

DRUGS (1)
  1. MIRENA [Suspect]
     Dosage: 20 MCG/24HR, CONT
     Route: 015
     Dates: start: 2008, end: 201308

REACTIONS (5)
  - Device dislocation [None]
  - Pregnancy with contraceptive device [Recovered/Resolved]
  - Abdominal pain lower [Recovered/Resolved]
  - Drug ineffective [None]
  - Peritoneal adhesions [None]
